APPROVED DRUG PRODUCT: FINGOLIMOD HYDROCHLORIDE
Active Ingredient: FINGOLIMOD HYDROCHLORIDE
Strength: EQ 0.5MG BASE
Dosage Form/Route: CAPSULE;ORAL
Application: A208008 | Product #001 | TE Code: AB
Applicant: TEVA PHARMACEUTICALS USA INC
Approved: Jul 2, 2020 | RLD: No | RS: No | Type: RX